FAERS Safety Report 19582290 (Version 1)
Quarter: 2021Q3

REPORT INFORMATION
  Report Type: Spontaneous
  Country: CA (occurrence: CA)
  Receive Date: 20210719
  Receipt Date: 20210719
  Transmission Date: 20211014
  Serious: Yes (Other)
  Sender: FDA-Public Use
  Company Number: CA-JNJFOC-20210728862

PATIENT
  Age: 51 Year
  Sex: Male
  Weight: 120 kg

DRUGS (4)
  1. SINGULAIR [Concomitant]
     Active Substance: MONTELUKAST SODIUM
     Route: 065
  2. PREDNISONE. [Concomitant]
     Active Substance: PREDNISONE
     Route: 065
  3. BUDESONIDE;FORMOTEROL FUMARATE [Concomitant]
     Active Substance: BUDESONIDE\FORMOTEROL FUMARATE
     Route: 065
  4. REMICADE [Suspect]
     Active Substance: INFLIXIMAB
     Indication: COLITIS ULCERATIVE
     Route: 042

REACTIONS (8)
  - Mucous stools [Unknown]
  - Off label use [Unknown]
  - Headache [Unknown]
  - Weight decreased [Unknown]
  - Weight increased [Unknown]
  - Malaise [Unknown]
  - Intentional product use issue [Unknown]
  - Diarrhoea haemorrhagic [Unknown]
